FAERS Safety Report 4348076-4 (Version None)
Quarter: 2004Q1

REPORT INFORMATION
  Report Type: 
  Country: None (occurrence: None)
  Receive Date: 20040325
  Receipt Date: 20040210
  Transmission Date: 20041129
  Serious: No
  Sender: FDA-Public Use
  Company Number: USA040258911

PATIENT
  Age: 59 Year
  Weight: 95 kg

DRUGS (6)
  1. FORTEO [Suspect]
     Indication: OSTEOPOROSIS
     Dosage: 20 UG/DAY
     Dates: start: 20030701, end: 20040201
  2. MULTI-VITAMIN [Concomitant]
  3. VITAMIN E [Concomitant]
  4. VITAMIN B6 [Concomitant]
  5. DICLOFENAC [Concomitant]
  6. PLAQUENIL [Concomitant]

REACTIONS (2)
  - FIBROMYALGIA [None]
  - PAIN IN EXTREMITY [None]
